FAERS Safety Report 13451873 (Version 5)
Quarter: 2017Q4

REPORT INFORMATION
  Report Type: Report from Study
  Country: IQ (occurrence: IQ)
  Receive Date: 20170418
  Receipt Date: 20171128
  Transmission Date: 20180320
  Serious: Yes (Other)
  Sender: FDA-Public Use
  Company Number: PHHY2016IQ148420

PATIENT
  Sex: Male

DRUGS (1)
  1. TASIGNA [Suspect]
     Active Substance: NILOTINIB
     Indication: CHRONIC MYELOID LEUKAEMIA
     Dosage: 800 MG, QD
     Route: 048
     Dates: start: 2015

REACTIONS (31)
  - Cytogenetic analysis abnormal [Not Recovered/Not Resolved]
  - Rash [Not Recovered/Not Resolved]
  - Fear [Not Recovered/Not Resolved]
  - Lymphocyte count increased [Unknown]
  - Pain [Unknown]
  - Dysuria [Not Recovered/Not Resolved]
  - Lacrimation increased [Recovering/Resolving]
  - Oropharyngeal pain [Recovered/Resolved]
  - Pruritus [Unknown]
  - Hypersensitivity [Not Recovered/Not Resolved]
  - Leukocytosis [Recovered/Resolved]
  - Influenza [Recovered/Resolved]
  - Chronic tonsillitis [Unknown]
  - Leukocytosis [Not Recovered/Not Resolved]
  - Myalgia [Not Recovered/Not Resolved]
  - Anxiety [Unknown]
  - Inappropriate schedule of drug administration [Unknown]
  - Leukocytosis [Not Recovered/Not Resolved]
  - Influenza [Recovering/Resolving]
  - Skin disorder [Not Recovered/Not Resolved]
  - Hot flush [Recovered/Resolved]
  - Skin mass [Not Recovered/Not Resolved]
  - Lymphadenitis [Unknown]
  - Lymphocytosis [Not Recovered/Not Resolved]
  - Abdominal pain upper [Not Recovered/Not Resolved]
  - Fatigue [Not Recovered/Not Resolved]
  - Pyrexia [Not Recovered/Not Resolved]
  - Blood creatinine increased [Recovered/Resolved]
  - Ultrasound scan abnormal [Unknown]
  - White blood cell count increased [Not Recovered/Not Resolved]
  - Insomnia [Not Recovered/Not Resolved]

NARRATIVE: CASE EVENT DATE: 201601
